FAERS Safety Report 9656633 (Version 1)
Quarter: 2013Q4

REPORT INFORMATION
  Report Type: Spontaneous
  Country: AT (occurrence: AT)
  Receive Date: 20131030
  Receipt Date: 20131030
  Transmission Date: 20140711
  Serious: Yes (Other)
  Sender: FDA-Public Use
  Company Number: AT-ASTELLAS-2013EU009248

PATIENT
  Age: 73 Year
  Sex: Male

DRUGS (3)
  1. XTANDI [Suspect]
     Dosage: UNK
     Route: 065
  2. PANTOLOC                           /01263204/ [Concomitant]
     Dosage: UNK
     Route: 065
  3. TRAMAL [Concomitant]
     Dosage: UNK
     Route: 065

REACTIONS (2)
  - Nausea [Recovering/Resolving]
  - Vomiting [Recovering/Resolving]
